FAERS Safety Report 6219160-5 (Version None)
Quarter: 2009Q2

REPORT INFORMATION
  Report Type: 
  Country: None (occurrence: None)
  Receive Date: 20090605
  Receipt Date: 20090605
  Transmission Date: 20091009
  Serious: Yes (Hospitalization)
  Sender: FDA-Public Use
  Company Number: None

PATIENT
  Age: 18 Year
  Sex: Female
  Weight: 51.2565 kg

DRUGS (3)
  1. LEVAQUIN [Suspect]
     Indication: SINUSITIS
     Dosage: 750MG ONCE DAILY PO
     Route: 048
     Dates: start: 20090601, end: 20090602
  2. LEVAQUIN [Suspect]
     Indication: URINARY TRACT INFECTION
     Dosage: 750MG ONCE DAILY PO
     Route: 048
     Dates: start: 20090601, end: 20090602
  3. CIPRO OPTHO SUSPENSION 0.3% [Suspect]
     Indication: CONJUNCTIVITIS INFECTIVE
     Dosage: 2 DROPS IN EACH EYE TWICE DAILY OPHTHALMIC
     Route: 047

REACTIONS (11)
  - AGITATION [None]
  - CHEST PAIN [None]
  - CHILLS [None]
  - CONFUSIONAL STATE [None]
  - DISORIENTATION [None]
  - DIZZINESS [None]
  - JOINT SWELLING [None]
  - OBSTRUCTIVE AIRWAYS DISORDER [None]
  - PAIN IN EXTREMITY [None]
  - SHOCK [None]
  - SWELLING [None]
